FAERS Safety Report 9766078 (Version 3)
Quarter: 2015Q1

REPORT INFORMATION
  Report Type: Spontaneous
  Country: US (occurrence: US)
  Receive Date: 20131217
  Receipt Date: 20150306
  Transmission Date: 20150721
  Serious: No
  Sender: FDA-Public Use
  Company Number: US-GLAXOSMITHKLINE-A1018139A

PATIENT
  Sex: Male
  Weight: 113.6 kg

DRUGS (3)
  1. INDOCIN [Concomitant]
     Active Substance: INDOMETHACIN\INDOMETHACIN SODIUM
  2. WARFARIN [Concomitant]
     Active Substance: WARFARIN
  3. VOTRIENT [Suspect]
     Active Substance: PAZOPANIB HYDROCHLORIDE
     Indication: RENAL CANCER METASTATIC
     Dosage: (4) 200 MG TABLETS AT 800 MG DAILY; PATIENT STOPPED ON HIS OWN THEN PHYSICIAN REDUCED TO 200MG [...]
     Route: 048

REACTIONS (3)
  - Alopecia [Unknown]
  - Fatigue [Unknown]
  - Arthralgia [Unknown]
